FAERS Safety Report 15100352 (Version 1)
Quarter: 2018Q3

REPORT INFORMATION
  Report Type: Report from Study
  Country: AU (occurrence: AU)
  Receive Date: 20180703
  Receipt Date: 20180703
  Transmission Date: 20181010
  Serious: Yes (Death)
  Sender: FDA-Public Use
  Company Number: AU-CIPLA LTD.-2018AU19523

PATIENT

DRUGS (6)
  1. 5?FU                               /00098801/ [Suspect]
     Active Substance: FLUOROURACIL
     Indication: COLORECTAL CANCER METASTATIC
     Dosage: 400 MG/M2, EVERY 2 WEEKS, STARTING ON DAY 1 OF CYCLE 1
     Route: 040
  2. LEUCOVORIN                         /00566701/ [Suspect]
     Active Substance: LEUCOVORIN
     Indication: COLORECTAL CANCER METASTATIC
     Dosage: UNK, (RACEMIC FORM 400 MG/M2 OR L?ISOMER FORM 200 MG/M2) EVERY 2 WEEKS, STARTING ON DAY 1 OF CYCLE 1
     Route: 065
  3. IRINOTECAN [Suspect]
     Active Substance: IRINOTECAN
     Indication: COLORECTAL CANCER METASTATIC
     Dosage: 180 MG/M2, EVERY 2 WEEKS, STARTING ON DAY 1 OF CYCLE 1
     Route: 065
  4. OXALIPLATIN. [Suspect]
     Active Substance: OXALIPLATIN
     Indication: COLORECTAL CANCER METASTATIC
     Dosage: UNK
     Route: 065
  5. 5?FU                               /00098801/ [Suspect]
     Active Substance: FLUOROURACIL
     Dosage: 2400 MG/M2, (46 HOUR INFUSIONAL DOSE), EVERY 2 WEEKS STARTING ON DAY 1 OF CYCLE 1
  6. DULIGOTUMAB [Suspect]
     Active Substance: DULIGOTUZUMAB
     Indication: COLORECTAL CANCER METASTATIC
     Dosage: 1100 MG FIXED DOSE, EVERY 2 WEEKS
     Route: 042

REACTIONS (1)
  - Respiratory failure [Fatal]
